FAERS Safety Report 21094931 (Version 7)
Quarter: 2022Q4

REPORT INFORMATION
  Report Type: Spontaneous
  Country: US (occurrence: US)
  Receive Date: 20220718
  Receipt Date: 20221205
  Transmission Date: 20230113
  Serious: No
  Sender: FDA-Public Use
  Company Number: US-NOVARTISTESTPH-NVSC2022US162358

PATIENT
  Sex: Female

DRUGS (3)
  1. VIVELLE-DOT [Suspect]
     Active Substance: ESTRADIOL
     Indication: Product used for unknown indication
     Dosage: UNK UNK, BIW
     Route: 062
     Dates: start: 2005
  2. VIVELLE-DOT [Suspect]
     Active Substance: ESTRADIOL
     Dosage: UNK UNK, BIW, (DOSE: 0.0375)
     Route: 062
  3. TESTOSTERONE [Concomitant]
     Active Substance: TESTOSTERONE
     Indication: Product used for unknown indication
     Dosage: 20 MG, BIW
     Route: 065

REACTIONS (3)
  - Application site erythema [Unknown]
  - Application site pain [Unknown]
  - Application site pruritus [Unknown]
